FAERS Safety Report 6312221-1 (Version None)
Quarter: 2009Q3

REPORT INFORMATION
  Report Type: 
  Country: None (occurrence: None)
  Receive Date: 20090817
  Receipt Date: 20090717
  Transmission Date: 20100115
  Serious: No
  Sender: FDA-Public Use
  Company Number: US-BAYER-200912430BCC

PATIENT
  Age: 86 Year
  Sex: Female
  Weight: 53 kg

DRUGS (6)
  1. ALEVE-D SINUS + COLD [Suspect]
     Indication: SINUSITIS
     Route: 048
     Dates: start: 20090716
  2. LISINOPRIL [Concomitant]
  3. ACTONEL [Concomitant]
  4. SIMVASTATIN [Concomitant]
  5. TIMINOL [Concomitant]
     Dosage: ]
     Route: 061
  6. HYDROCHLOROTHIAZIDE [Concomitant]

REACTIONS (2)
  - HYPERHIDROSIS [None]
  - INSOMNIA [None]
